FAERS Safety Report 19849298 (Version 1)
Quarter: 2021Q3

REPORT INFORMATION
  Report Type: Report from Study
  Country: US (occurrence: US)
  Receive Date: 20210917
  Receipt Date: 20210917
  Transmission Date: 20211014
  Serious: Yes (Hospitalization, Other)
  Sender: FDA-Public Use
  Company Number: US-TAKEDA-2021TUS022032

PATIENT
  Sex: Female

DRUGS (2)
  1. BORTEZOMIB. [Suspect]
     Active Substance: BORTEZOMIB
     Indication: PLASMA CELL MYELOMA
     Dosage: 2.2 MILLIGRAM
     Route: 065
     Dates: start: 20200401
  2. BORTEZOMIB. [Suspect]
     Active Substance: BORTEZOMIB
     Dosage: 2.3 MILLIGRAM
     Route: 058

REACTIONS (3)
  - Humerus fracture [Unknown]
  - Femur fracture [Unknown]
  - Gastroenteritis viral [Unknown]
